FAERS Safety Report 6244154-3 (Version None)
Quarter: 2009Q2

REPORT INFORMATION
  Report Type: 
  Country: None (occurrence: None)
  Receive Date: 20090623
  Receipt Date: 20090623
  Transmission Date: 20091009
  Serious: Yes (Hospitalization)
  Sender: FDA-Public Use
  Company Number: None

PATIENT
  Age: 78 Year
  Sex: Male
  Weight: 84.4 kg

DRUGS (1)
  1. ATENOLOL [Suspect]
     Indication: CARDIAC FAILURE CONGESTIVE
     Dosage: 25 MG EVERY DAY PO
     Route: 048
     Dates: start: 20090124, end: 20090513

REACTIONS (6)
  - BRADYCARDIA [None]
  - CHEST DISCOMFORT [None]
  - CHEST PAIN [None]
  - HYPOTENSION [None]
  - PARAESTHESIA [None]
  - PRESYNCOPE [None]
